FAERS Safety Report 20353182 (Version 3)
Quarter: 2023Q2

REPORT INFORMATION
  Report Type: Spontaneous
  Country: US (occurrence: US)
  Receive Date: 20220119
  Receipt Date: 20230505
  Transmission Date: 20230721
  Serious: Yes (Hospitalization)
  Sender: FDA-Public Use
  Company Number: US-PFIZER INC-202101076174

PATIENT
  Age: 40 Year
  Sex: Female

DRUGS (3)
  1. IBRANCE [Suspect]
     Active Substance: PALBOCICLIB
     Dosage: 75 MG
     Dates: start: 20200804
  2. IBRANCE [Suspect]
     Active Substance: PALBOCICLIB
     Dosage: 75 MG
     Dates: start: 20210910
  3. IBRANCE [Suspect]
     Active Substance: PALBOCICLIB
     Dosage: 75 MG
     Dates: start: 20211103

REACTIONS (8)
  - Abdominal pain [Recovered/Resolved]
  - Oral infection [Unknown]
  - Fatigue [Unknown]
  - Skin infection [Unknown]
  - Gastrooesophageal reflux disease [Unknown]
  - Sinusitis [Recovering/Resolving]
  - Nasopharyngitis [Unknown]
  - Dental discomfort [Unknown]
